FAERS Safety Report 16877059 (Version 1)
Quarter: 2019Q4

REPORT INFORMATION
  Report Type: Spontaneous
  Country: US (occurrence: US)
  Receive Date: 20191002
  Receipt Date: 20191002
  Transmission Date: 20200122
  Serious: Yes (Other)
  Sender: FDA-Public Use
  Company Number: US-TEVA-2019-US-1115579

PATIENT
  Age: 82 Year
  Sex: Female

DRUGS (6)
  1. SERTRALINE [Concomitant]
     Active Substance: SERTRALINE HYDROCHLORIDE
     Dosage: 100 MILLIGRAM DAILY;
     Route: 065
  2. DROXIDOPA [Interacting]
     Active Substance: DROXIDOPA
     Route: 065
  3. DROXIDOPA [Interacting]
     Active Substance: DROXIDOPA
     Indication: ORTHOSTATIC HYPOTENSION
     Dosage: 200 MILLIGRAM DAILY;
     Route: 065
  4. DROXIDOPA [Interacting]
     Active Substance: DROXIDOPA
     Dosage: 400 MILLIGRAM DAILY;
     Route: 065
  5. RIVASTIGMINE. [Concomitant]
     Active Substance: RIVASTIGMINE
     Dosage: 9.5 MILLIGRAM DAILY;
     Route: 065
  6. CARBIDOPA AND LEVODOPA [Suspect]
     Active Substance: CARBIDOPA\LEVODOPA
     Indication: PARKINSON^S DISEASE
     Dosage: 7 DOSAGE FORMS DAILY;
     Route: 065

REACTIONS (8)
  - Confusional state [Recovered/Resolved]
  - Insomnia [Recovered/Resolved]
  - Drug interaction [Unknown]
  - Agitation [Recovered/Resolved]
  - Dizziness [Recovered/Resolved]
  - Mania [Recovered/Resolved]
  - Speech disorder [Recovered/Resolved]
  - Restlessness [Recovered/Resolved]
